FAERS Safety Report 22370502 (Version 1)
Quarter: 2023Q2

REPORT INFORMATION
  Report Type: Other
  Country: AU (occurrence: AU)
  Receive Date: 20230526
  Receipt Date: 20230526
  Transmission Date: 20230722
  Serious: Yes (Other)
  Sender: FDA-Public Use
  Company Number: AU-CELLTRION INC.-2023AU010835

PATIENT

DRUGS (15)
  1. ADALIMUMAB [Suspect]
     Active Substance: ADALIMUMAB
     Indication: Product used for unknown indication
  2. RINVOQ [Suspect]
     Active Substance: UPADACITINIB
     Indication: Product used for unknown indication
  3. BUTYLSCOPOLAMINE BROMIDE [Concomitant]
     Active Substance: BUTYLSCOPOLAMINE BROMIDE
  4. ENDEP [Concomitant]
     Active Substance: AMITRIPTYLINE HYDROCHLORIDE
  5. EPIPEN [Concomitant]
     Active Substance: EPINEPHRINE
  6. PALEXIA [Concomitant]
     Active Substance: TAPENTADOL HYDROCHLORIDE
  7. CANNABIDIOL [Concomitant]
     Active Substance: CANNABIDIOL
  8. CETIRIZINE HYDROCHLORIDE [Concomitant]
     Active Substance: CETIRIZINE HYDROCHLORIDE
  9. CHOLECALCIFEROL [Concomitant]
     Active Substance: CHOLECALCIFEROL
  10. FOLIC ACID [Concomitant]
     Active Substance: FOLIC ACID
  11. IVABRADINE [Concomitant]
     Active Substance: IVABRADINE
  12. MESALAMINE [Concomitant]
     Active Substance: MESALAMINE
  13. PANTOPRAZOLE [Concomitant]
     Active Substance: PANTOPRAZOLE
  14. SODIUM CHLORIDE [Concomitant]
     Active Substance: SODIUM CHLORIDE
  15. TRAMADOL HYDROCHLORIDE [Concomitant]
     Active Substance: TRAMADOL HYDROCHLORIDE

REACTIONS (19)
  - Disability [Unknown]
  - Haematochezia [Unknown]
  - Haemorrhage [Unknown]
  - Breast ulceration [Unknown]
  - Cushingoid [Unknown]
  - Diarrhoea [Unknown]
  - Fibromyalgia [Unknown]
  - Multimorbidity [Unknown]
  - Post inflammatory pigmentation change [Unknown]
  - Ulcer [Unknown]
  - Arthritis [Unknown]
  - Dyspnoea [Unknown]
  - Injection site swelling [Unknown]
  - Muscle spasms [Unknown]
  - Nausea [Unknown]
  - Pain [Unknown]
  - Skin ulcer [Unknown]
  - Urticaria [Unknown]
  - Vomiting [Unknown]
